FAERS Safety Report 6581573 (Version 3)
Quarter: 2025Q3

REPORT INFORMATION
  Report Type: Spontaneous
  Country: TR (occurrence: TR)
  Receive Date: 20080314
  Receipt Date: 20250814
  Transmission Date: 20251021
  Serious: Yes (Death, Hospitalization)
  Sender: MERCK SHARP & DOHME LLC
  Company Number: TR-MERCK-0803TUR00003

PATIENT
  Age: 47 Year
  Sex: Male

DRUGS (11)
  1. CASPOFUNGIN ACETATE [Suspect]
     Active Substance: CASPOFUNGIN ACETATE
     Dosage: DOSE DESCRIPTION : 70 MG, QD?DAILY DOSE : 70 MILLIGRAM
     Route: 041
  2. CASPOFUNGIN ACETATE [Suspect]
     Active Substance: CASPOFUNGIN ACETATE
     Dosage: DOSE DESCRIPTION : 50 MG, QD?DAILY DOSE : 50 MILLIGRAM
     Route: 041
  3. PIPERACILLIN SODIUM\TAZOBACTAM SODIUM [Concomitant]
     Active Substance: PIPERACILLIN SODIUM\TAZOBACTAM SODIUM
     Dosage: DOSE DESCRIPTION : 4.5 G, Q6H?DAILY DOSE : 18 GRAM
     Route: 042
  4. AMIKACIN [Concomitant]
     Active Substance: AMIKACIN
     Dosage: DOSE DESCRIPTION : 1 G, QD?DAILY DOSE : 1 GRAM
     Route: 042
  5. CYTARABINE (+) IDARUBICIN HYDROCHLORIDE [Concomitant]
  6. IMIPENEM [Concomitant]
     Active Substance: IMIPENEM
     Dosage: DOSE DESCRIPTION : 500 MG, Q6H?DAILY DOSE : 2000 MILLIGRAM
     Route: 042
  7. AMPHOTERICIN B\CHOLESTEROL [Concomitant]
     Active Substance: AMPHOTERICIN B\CHOLESTEROL
     Dosage: DOSE DESCRIPTION : 5 MG/KG, BID?DAILY DOSE : 10 MILLIGRAM/KILOGRAM
     Route: 042
  8. GRANULOCYTE-MACROPHAGE COLONY-STIMULATING FACTOR [Concomitant]
     Active Substance: GRANULOCYTE-MACROPHAGE COLONY-STIMULATING FACTOR
  9. VORICONAZOLE [Concomitant]
     Active Substance: VORICONAZOLE
     Dosage: DOSE DESCRIPTION : 600 MG, BID?DAILY DOSE : 1200 MILLIGRAM
     Route: 042
  10. VORICONAZOLE [Concomitant]
     Active Substance: VORICONAZOLE
     Dosage: DOSE DESCRIPTION : 400 MG, BID?DAILY DOSE : 800 MILLIGRAM
     Route: 042
  11. INSULIN NOS [Concomitant]
     Active Substance: INSULIN NOS
     Route: 042

REACTIONS (4)
  - Febrile neutropenia [Fatal]
  - Drug ineffective [Fatal]
  - Disseminated intravascular coagulation [Fatal]
  - Fungal sepsis [Fatal]
